FAERS Safety Report 5038149-5 (Version None)
Quarter: 2006Q2

REPORT INFORMATION
  Report Type: 
  Country: None (occurrence: None)
  Receive Date: 20060622
  Receipt Date: 20060609
  Transmission Date: 20061013
  Serious: Yes (Hospitalization, Other)
  Sender: FDA-Public Use
  Company Number: 2006031061

PATIENT
  Age: 70 Year
  Sex: Male

DRUGS (1)
  1. BEXTRA [Suspect]
     Indication: ILL-DEFINED DISORDER
     Dosage: 10 MG, ORAL
     Route: 048
     Dates: start: 20030807, end: 20030811

REACTIONS (12)
  - COUGH [None]
  - DRUG HYPERSENSITIVITY [None]
  - DYSURIA [None]
  - ERYTHEMA [None]
  - EXCITABILITY [None]
  - FEELING HOT [None]
  - GINGIVAL PAIN [None]
  - MOOD SWINGS [None]
  - PHARYNGEAL OEDEMA [None]
  - PROSTATE EXAMINATION ABNORMAL [None]
  - SPEECH DISORDER [None]
  - STEVENS-JOHNSON SYNDROME [None]
